FAERS Safety Report 4568429-9 (Version None)
Quarter: 2005Q1

REPORT INFORMATION
  Report Type: 
  Country: None (occurrence: None)
  Receive Date: 20050131
  Receipt Date: 20050121
  Transmission Date: 20050727
  Serious: Yes (Other)
  Sender: FDA-Public Use
  Company Number: DE-2004-036605

PATIENT
  Age: 40 Year
  Sex: Female

DRUGS (1)
  1. MIRENA [Suspect]
     Indication: MENORRHAGIA
     Dosage: 20 UGDAY CONT INTRA-UTERINE
     Route: 015
     Dates: start: 20041124

REACTIONS (2)
  - DISEASE RECURRENCE [None]
  - IRITIS [None]
